FAERS Safety Report 24335111 (Version 1)
Quarter: 2024Q3

REPORT INFORMATION
  Report Type: Spontaneous
  Country: US (occurrence: US)
  Receive Date: 20240918
  Receipt Date: 20240918
  Transmission Date: 20241017
  Serious: No
  Sender: NOVARTIS
  Company Number: US-002147023-NVSC2024US186518

PATIENT
  Sex: Male

DRUGS (1)
  1. LEQVIO [Suspect]
     Active Substance: INCLISIRAN SODIUM
     Indication: Product used for unknown indication
     Dosage: 284 MG (INITIAL DOSE, 3 MONTH DOSE, EVERY 6 MONTHS THEREAFTER)
     Route: 058
     Dates: start: 2023

REACTIONS (1)
  - Rash [Not Recovered/Not Resolved]
